FAERS Safety Report 4827830-6 (Version None)
Quarter: 2005Q4

REPORT INFORMATION
  Report Type: 
  Country: None (occurrence: None)
  Receive Date: 20051114
  Receipt Date: 20051114
  Transmission Date: 20060501
  Serious: Yes (Life-Threatening, Hospitalization)
  Sender: FDA-Public Use
  Company Number: None

PATIENT
  Age: 46 Year
  Sex: Female

DRUGS (6)
  1. GASTROGRAFIN [Suspect]
     Indication: DIAGNOSTIC PROCEDURE
     Dosage: 60 ML ONCE PO
     Route: 048
     Dates: start: 20050921, end: 20050921
  2. SIMETHICONE [Concomitant]
  3. PROVENTIL [Concomitant]
  4. ATROVEN [Concomitant]
  5. REGLAN [Concomitant]
  6. CEFAZOLIN [Concomitant]

REACTIONS (1)
  - ANGIONEUROTIC OEDEMA [None]
